FAERS Safety Report 6295163-X (Version None)
Quarter: 2009Q3

REPORT INFORMATION
  Report Type: 
  Country: None (occurrence: None)
  Receive Date: 20090803
  Receipt Date: 20090727
  Transmission Date: 20100115
  Serious: No
  Sender: FDA-Public Use
  Company Number: CR-AVENTIS-200820285GDDC

PATIENT
  Age: 34 Year
  Sex: Female

DRUGS (1)
  1. ARAVA [Suspect]
     Indication: RHEUMATOID ARTHRITIS
     Route: 048
     Dates: start: 20050101, end: 20081029

REACTIONS (2)
  - DRUG EXPOSURE DURING PREGNANCY [None]
  - PROLONGED PREGNANCY [None]
